FAERS Safety Report 9335619 (Version 1)
Quarter: 2013Q2

REPORT INFORMATION
  Report Type: Spontaneous
  Country: CA (occurrence: CA)
  Receive Date: 20130605
  Receipt Date: 20130605
  Transmission Date: 20140414
  Serious: Yes (Other)
  Sender: FDA-Public Use
  Company Number: CA-PFIZER INC-2013164593

PATIENT
  Age: 60 Year
  Sex: Male

DRUGS (1)
  1. TOVIAZ [Suspect]
     Indication: HYPERTONIC BLADDER
     Dosage: UNK
     Dates: end: 201305

REACTIONS (5)
  - Hypersensitivity [Unknown]
  - Swollen tongue [Unknown]
  - Rash [Unknown]
  - Tremor [Unknown]
  - Agitation [Unknown]
